FAERS Safety Report 6396172-2 (Version None)
Quarter: 2009Q4

REPORT INFORMATION
  Report Type: 
  Country: None (occurrence: None)
  Receive Date: 20091009
  Receipt Date: 20090928
  Transmission Date: 20100525
  Serious: Yes (Hospitalization)
  Sender: FDA-Public Use
  Company Number: US-ELI_LILLY_AND_COMPANY-US200909006683

PATIENT
  Sex: Female
  Weight: 153.74 kg

DRUGS (2)
  1. OLANZAPINE + FLUOXETINE HCL [Suspect]
     Indication: MAJOR DEPRESSION
     Dates: start: 20090826
  2. SYNTHROID [Concomitant]

REACTIONS (1)
  - HOSPITALISATION [None]
